FAERS Safety Report 4686185-0 (Version None)
Quarter: 2005Q2

REPORT INFORMATION
  Report Type: 
  Country: None (occurrence: None)
  Receive Date: 20050609
  Receipt Date: 20050520
  Transmission Date: 20051028
  Serious: Yes (Hospitalization)
  Sender: FDA-Public Use
  Company Number: US-BOEHRINGER INGELHEIM PHARMACEUTICALS, INC.-2005-BP-08410BP

PATIENT
  Age: 53 Year
  Sex: Female

DRUGS (10)
  1. MOBIC [Suspect]
     Indication: ARTHRITIS
     Route: 048
     Dates: start: 20040301, end: 20040401
  2. MOBIC [Suspect]
     Route: 048
     Dates: start: 20050301, end: 20050401
  3. INSULIN [Concomitant]
  4. OXYCONTIN [Concomitant]
  5. OXYCODONE HCL [Concomitant]
  6. AMITRIPTYLINE [Concomitant]
  7. TEMAZEPAM [Concomitant]
  8. VITAMINS [Concomitant]
  9. MILK OF MAGNESIA [Concomitant]
  10. CALCIUM GLUCONATE [Concomitant]

REACTIONS (4)
  - ABDOMINAL PAIN LOWER [None]
  - ADHESION [None]
  - FLATULENCE [None]
  - GALLBLADDER PAIN [None]
